FAERS Safety Report 21259019 (Version 1)
Quarter: 2022Q3

REPORT INFORMATION
  Report Type: Spontaneous
  Country: US (occurrence: None)
  Receive Date: 20220825
  Receipt Date: 20220825
  Transmission Date: 20221027
  Serious: No
  Sender: FDA-Public Use
  Company Number: None

PATIENT
  Sex: Male

DRUGS (1)
  1. STELARA [Suspect]
     Active Substance: USTEKINUMAB
     Indication: Crohn^s disease
     Dosage: FREQUENCY : ONCE; EVERY 8 WEEKS?
     Route: 058
     Dates: start: 202009, end: 202206

REACTIONS (2)
  - Drug ineffective [None]
  - Therapy cessation [None]
